FAERS Safety Report 20159709 (Version 1)
Quarter: 2021Q4

REPORT INFORMATION
  Report Type: Spontaneous
  Country: CA (occurrence: CA)
  Receive Date: 20211208
  Receipt Date: 20211208
  Transmission Date: 20220303
  Serious: Yes (Other)
  Sender: FDA-Public Use
  Company Number: CA-SA-SAC20211206001037

PATIENT
  Sex: Female

DRUGS (41)
  1. METRONIDAZOLE [Suspect]
     Active Substance: METRONIDAZOLE
  2. BISACODYL [Suspect]
     Active Substance: BISACODYL
  3. CETIRIZINE HYDROCHLORIDE [Suspect]
     Active Substance: CETIRIZINE HYDROCHLORIDE
  4. DIPHENHYDRAMINE [Suspect]
     Active Substance: DIPHENHYDRAMINE
  5. PREDNISONE [Suspect]
     Active Substance: PREDNISONE
  6. SULFAMETHOXAZOLE\TRIMETHOPRIM [Suspect]
     Active Substance: SULFAMETHOXAZOLE\TRIMETHOPRIM
  7. AZITHROMYCIN [Suspect]
     Active Substance: AZITHROMYCIN
  8. AMOXICILLIN TRIHYDRATE [Suspect]
     Active Substance: AMOXICILLIN
  9. PREGABALIN [Suspect]
     Active Substance: PREGABALIN
  10. GRAMICIDIN\NEOMYCIN SULFATE\POLYMYXIN B SULFATE [Suspect]
     Active Substance: GRAMICIDIN\NEOMYCIN SULFATE\POLYMYXIN B SULFATE
     Indication: Product used for unknown indication
  11. BETAMETHASONE VALERATE [Suspect]
     Active Substance: BETAMETHASONE VALERATE
  12. BETAMETHASONE DIPROPIONATE [Suspect]
     Active Substance: BETAMETHASONE DIPROPIONATE
  13. ALPRAZOLAM [Suspect]
     Active Substance: ALPRAZOLAM
  14. ATORVASTATIN CALCIUM [Suspect]
     Active Substance: ATORVASTATIN CALCIUM
  15. NICODERM CQ [Suspect]
     Active Substance: NICOTINE
  16. NICOTINE POLACRILEX [Suspect]
     Active Substance: NICOTINE
  17. ACETAMINOPHEN [Suspect]
     Active Substance: ACETAMINOPHEN
  18. FLUTICASONE PROPIONATE [Suspect]
     Active Substance: FLUTICASONE PROPIONATE
  19. CALCIUM CARBONATE [Suspect]
     Active Substance: CALCIUM CARBONATE
  20. CLARITHROMYCIN [Suspect]
     Active Substance: CLARITHROMYCIN
  21. CLOTRIMAZOLE [Suspect]
     Active Substance: CLOTRIMAZOLE
  22. DESONIDE [Suspect]
     Active Substance: DESONIDE
  23. MESALAMINE [Suspect]
     Active Substance: MESALAMINE
  24. ENTOCORT [Suspect]
     Active Substance: BUDESONIDE
  25. BUDESONIDE [Suspect]
     Active Substance: BUDESONIDE
  26. ERGOCALCIFEROL [Suspect]
     Active Substance: ERGOCALCIFEROL
  27. ERTAPENEM SODIUM [Suspect]
     Active Substance: ERTAPENEM SODIUM
  28. FLUTICASONE FUROATE [Suspect]
     Active Substance: FLUTICASONE FUROATE
  29. GLYCERIN [Suspect]
     Active Substance: GLYCERIN
     Route: 048
  30. HUMIRA [Suspect]
     Active Substance: ADALIMUMAB
     Indication: Crohn^s disease
     Route: 058
  31. HYDROCHLOROTHIAZIDE [Suspect]
     Active Substance: HYDROCHLOROTHIAZIDE
  32. MORPHINE SULFATE [Suspect]
     Active Substance: MORPHINE SULFATE
  33. MUPIROCIN [Suspect]
     Active Substance: MUPIROCIN
     Route: 061
  34. NADOLOL [Suspect]
     Active Substance: NADOLOL
  35. PULMICORT TURBUHALER [Suspect]
     Active Substance: BUDESONIDE
  36. REFRESH TEARS [Suspect]
     Active Substance: CARBOXYMETHYLCELLULOSE SODIUM
     Route: 047
  37. BIAXIN [Suspect]
     Active Substance: CLARITHROMYCIN
  38. SODIUM BICARBONATE\SODIUM CHLORIDE [Suspect]
     Active Substance: SODIUM BICARBONATE\SODIUM CHLORIDE
     Route: 045
  39. TRIAMCINOLONE [Suspect]
     Active Substance: TRIAMCINOLONE
     Route: 014
  40. VITAMIN D3 [Suspect]
     Active Substance: CHOLECALCIFEROL
  41. VALSARTAN [Concomitant]
     Active Substance: VALSARTAN

REACTIONS (2)
  - Macular degeneration [Unknown]
  - Drug ineffective [Unknown]
